FAERS Safety Report 9894235 (Version 2)
Quarter: 2014Q3

REPORT INFORMATION
  Report Type: Spontaneous
  Country: US (occurrence: US)
  Receive Date: 20140213
  Receipt Date: 20140813
  Transmission Date: 20150326
  Serious: Yes (Hospitalization, Other)
  Sender: FDA-Public Use
  Company Number: US-009507513-1402USA005968

PATIENT
  Sex: Female
  Weight: 53.97 kg

DRUGS (1)
  1. NUVARING [Suspect]
     Active Substance: ETHINYL ESTRADIOL\ETONOGESTREL
     Indication: PRODUCT USED FOR UNKNOWN INDICATION
     Dosage: UNK
     Route: 067
     Dates: start: 201103

REACTIONS (2)
  - Pulmonary embolism [Recovering/Resolving]
  - Tonsillitis [Unknown]

NARRATIVE: CASE EVENT DATE: 20110818
